FAERS Safety Report 6232475-X (Version None)
Quarter: 2009Q2

REPORT INFORMATION
  Report Type: 
  Country: None (occurrence: None)
  Receive Date: 20090617
  Receipt Date: 20090609
  Transmission Date: 20091009
  Serious: Yes (Hospitalization)
  Sender: FDA-Public Use
  Company Number: JP-JNJFOC-20090603815

PATIENT
  Sex: Female
  Weight: 54 kg

DRUGS (20)
  1. MICONAZOLE [Suspect]
     Route: 048
     Dates: start: 20090407, end: 20090416
  2. MICONAZOLE [Suspect]
     Indication: ORAL FUNGAL INFECTION
     Route: 048
     Dates: start: 20090407, end: 20090416
  3. WARFARIN SODIUM [Interacting]
     Route: 048
  4. WARFARIN SODIUM [Interacting]
     Indication: PROPHYLAXIS
     Route: 048
  5. LASIX [Concomitant]
     Indication: CARDIAC FAILURE
     Route: 048
  6. CARBIDOPA AND LEVODOPA [Concomitant]
     Indication: PARKINSON'S DISEASE
     Route: 048
  7. DOPS [Concomitant]
     Indication: PARKINSON'S DISEASE
     Route: 048
  8. REQUIP [Concomitant]
     Indication: PARKINSON'S DISEASE
     Route: 048
  9. SELEGILINE HCL [Concomitant]
     Indication: PARKINSON'S DISEASE
     Route: 048
  10. AMLODIPINE [Concomitant]
     Indication: HYPERTENSION
     Route: 048
  11. ASPIRIN [Concomitant]
     Indication: ANGINA PECTORIS
     Route: 048
  12. ALDACTONE [Concomitant]
     Indication: CARDIAC FAILURE
     Route: 048
  13. AZELASTINE HCL [Concomitant]
     Indication: ASTHMA
     Route: 048
  14. GASTER D [Concomitant]
     Indication: GASTRIC ULCER
     Route: 048
  15. LIPITOR [Concomitant]
     Indication: HYPERLIPIDAEMIA
     Route: 048
  16. MEPTIN [Concomitant]
     Indication: ASTHMA
     Route: 048
  17. BISOLVON [Concomitant]
     Indication: ASTHMA
     Route: 048
  18. MAGNESIUM OXIDE [Concomitant]
     Indication: CONSTIPATION
     Route: 048
  19. ISOSORBIDE DINITRATE [Concomitant]
     Indication: CARDIAC FAILURE
     Route: 062
  20. INSULIN LISPRO [Concomitant]
     Indication: DIABETES MELLITUS
     Route: 058

REACTIONS (3)
  - DRUG INTERACTION [None]
  - HAEMORRHAGE SUBCUTANEOUS [None]
  - MOUTH HAEMORRHAGE [None]
